FAERS Safety Report 9100733 (Version 2)
Quarter: 2013Q2

REPORT INFORMATION
  Report Type: Spontaneous
  Country: CH (occurrence: CH)
  Receive Date: 20130215
  Receipt Date: 20130419
  Transmission Date: 20140414
  Serious: Yes (Hospitalization)
  Sender: FDA-Public Use
  Company Number: CH-ASTRAZENECA-2013SE09345

PATIENT
  Age: 69 Year
  Sex: Male
  Weight: 70 kg

DRUGS (4)
  1. CAPRELSA [Suspect]
     Indication: THYROID CANCER METASTATIC
     Route: 048
     Dates: start: 20120915
  2. LEVOTHYROXINE [Concomitant]
     Indication: HYPOTHYROIDISM
     Route: 048
     Dates: start: 2007
  3. PARACETAMOL [Concomitant]
     Route: 048
     Dates: start: 2009
  4. AMLODIPIN [Concomitant]
     Route: 048
     Dates: start: 2011

REACTIONS (1)
  - Retinal vein thrombosis [Not Recovered/Not Resolved]
